FAERS Safety Report 9399729 (Version 1)
Quarter: 2013Q3

REPORT INFORMATION
  Report Type: Report from Study
  Country: CA (occurrence: CA)
  Receive Date: 20130715
  Receipt Date: 20130715
  Transmission Date: 20140515
  Serious: Yes (Other)
  Sender: FDA-Public Use
  Company Number: CA-JNJFOC-20130705444

PATIENT
  Age: 24 Year
  Sex: Female
  Weight: 91.6 kg

DRUGS (5)
  1. REMICADE [Suspect]
     Indication: HIDRADENITIS
     Route: 042
     Dates: start: 20121207
  2. METFORMIN [Concomitant]
     Route: 065
  3. MORPHINE [Concomitant]
     Route: 065
  4. GRAVOL [Concomitant]
     Route: 065
  5. POLYETHYLENE GLYCOL POWDER [Concomitant]
     Route: 065

REACTIONS (4)
  - Fibrin D dimer increased [Unknown]
  - Local swelling [Not Recovered/Not Resolved]
  - Erythema [Recovering/Resolving]
  - Off label use [Unknown]
